FAERS Safety Report 15332768 (Version 2)
Quarter: 2018Q4

REPORT INFORMATION
  Report Type: Spontaneous
  Country: DE (occurrence: DE)
  Receive Date: 20180830
  Receipt Date: 20181026
  Transmission Date: 20190204
  Serious: Yes (Other)
  Sender: FDA-Public Use
  Company Number: DE-ASTELLAS-2018US036200

PATIENT
  Age: 60 Year
  Sex: Male

DRUGS (2)
  1. CORTISONE [Interacting]
     Active Substance: CORTISONE\HYDROCORTISONE
     Indication: PAIN IN EXTREMITY
     Dosage: UNK UNK, UNKNOWN FREQ.
     Route: 065
  2. XTANDI [Suspect]
     Active Substance: ENZALUTAMIDE
     Indication: HORMONE-REFRACTORY PROSTATE CANCER
     Dosage: UNK UNK, UNKNOWN FREQ.
     Route: 065

REACTIONS (4)
  - Drug effect decreased [Unknown]
  - Drug interaction [Unknown]
  - Metastases to bone [Unknown]
  - Prostatic specific antigen increased [Unknown]
